FAERS Safety Report 18297563 (Version 1)
Quarter: 2020Q3

REPORT INFORMATION
  Report Type: Spontaneous
  Country: US (occurrence: US)
  Receive Date: 20200922
  Receipt Date: 20200922
  Transmission Date: 20201103
  Serious: No
  Sender: FDA-Public Use
  Company Number: US-AMARIN PHARMA, INC.-2019AMR000394

PATIENT
  Age: 75 Year
  Sex: Female
  Weight: 82.63 kg

DRUGS (1)
  1. VASCEPA [Suspect]
     Active Substance: ICOSAPENT ETHYL
     Indication: BLOOD CHOLESTEROL ABNORMAL
     Route: 048
     Dates: start: 201903

REACTIONS (2)
  - Product use complaint [Unknown]
  - Eructation [Unknown]

NARRATIVE: CASE EVENT DATE: 2019
